FAERS Safety Report 5595404-8 (Version None)
Quarter: 2008Q1

REPORT INFORMATION
  Report Type: 
  Country: None (occurrence: None)
  Receive Date: 20080118
  Receipt Date: 20080114
  Transmission Date: 20080703
  Serious: Yes (Death, Life-Threatening, Hospitalization)
  Sender: FDA-Public Use
  Company Number: FR-JNJFOC-20080102965

PATIENT
  Sex: Female

DRUGS (6)
  1. RISPERDAL [Suspect]
     Indication: DRUG USE FOR UNKNOWN INDICATION
     Route: 048
  2. ATARAX [Concomitant]
     Indication: DRUG USE FOR UNKNOWN INDICATION
  3. ATHYMIL [Concomitant]
     Indication: DRUG USE FOR UNKNOWN INDICATION
  4. TARDYFERON [Concomitant]
     Indication: DRUG USE FOR UNKNOWN INDICATION
  5. TEMESTA [Concomitant]
     Indication: DRUG USE FOR UNKNOWN INDICATION
  6. MACROGOL [Concomitant]
     Indication: DRUG USE FOR UNKNOWN INDICATION

REACTIONS (1)
  - HAEMORRHAGIC STROKE [None]
